FAERS Safety Report 5079037-8 (Version None)
Quarter: 2006Q3

REPORT INFORMATION
  Report Type: 
  Country: None (occurrence: None)
  Receive Date: 20060808
  Receipt Date: 20060726
  Transmission Date: 20061208
  Serious: Yes (Other)
  Sender: FDA-Public Use
  Company Number: 2006093498

PATIENT
  Sex: Female

DRUGS (1)
  1. MEDROL [Suspect]
     Indication: SWELLING

REACTIONS (4)
  - DRUG EXPOSURE DURING PREGNANCY [None]
  - EYELID OEDEMA [None]
  - SKIN NODULE [None]
  - URTICARIA [None]
